FAERS Safety Report 25526913 (Version 1)
Quarter: 2025Q3

REPORT INFORMATION
  Report Type: Report from Study
  Country: BR (occurrence: BR)
  Receive Date: 20250707
  Receipt Date: 20250707
  Transmission Date: 20251020
  Serious: Yes (Hospitalization, Other)
  Sender: ABBVIE
  Company Number: BR-ABBVIE-6357615

PATIENT
  Age: 66 Year
  Sex: Male

DRUGS (1)
  1. SKYRIZI [Suspect]
     Active Substance: RISANKIZUMAB-RZAA
     Indication: Psoriasis
     Route: 058
     Dates: start: 20191009

REACTIONS (5)
  - Eye infection bacterial [Not Recovered/Not Resolved]
  - Cardiac arrest [Recovered/Resolved]
  - Septic shock [Recovered/Resolved]
  - Visual impairment [Not Recovered/Not Resolved]
  - Post procedural complication [Recovering/Resolving]

NARRATIVE: CASE EVENT DATE: 20240901
